FAERS Safety Report 7691345-0 (Version None)
Quarter: 2011Q3

REPORT INFORMATION
  Report Type: 
  Country: None (occurrence: None)
  Receive Date: 20110818
  Receipt Date: 20110807
  Transmission Date: 20111222
  Serious: Yes (Hospitalization)
  Sender: FDA-Public Use
  Company Number: PHHY2011MX72294

PATIENT

DRUGS (2)
  1. EXFORGE HCT [Suspect]
     Dates: end: 20110726
  2. GALVUS MET [Suspect]
     Indication: DIABETES MELLITUS
     Dosage: 2 DF, UNK
     Dates: start: 20110723, end: 20110726

REACTIONS (2)
  - RENAL FAILURE [None]
  - KIDNEY INFECTION [None]
